FAERS Safety Report 5988654-X (Version None)
Quarter: 2008Q4

REPORT INFORMATION
  Report Type: 
  Country: None (occurrence: None)
  Receive Date: 20081208
  Receipt Date: 20081208
  Transmission Date: 20090506
  Serious: Yes (Other)
  Sender: FDA-Public Use
  Company Number: None

PATIENT
  Age: 75 Year
  Weight: 67.586 kg

DRUGS (1)
  1. FENTANYL TRANSDERMAL SYSTEM [Suspect]
     Dosage: APPLY 1 PATCH EVERY 72 HOURS
     Route: 062

REACTIONS (2)
  - DEVICE FAILURE [None]
  - PRODUCT QUALITY ISSUE [None]
